FAERS Safety Report 5525877-8 (Version None)
Quarter: 2007Q4

REPORT INFORMATION
  Report Type: 
  Country: None (occurrence: None)
  Receive Date: 20071126
  Receipt Date: 20071114
  Transmission Date: 20080405
  Serious: Yes (Other)
  Sender: FDA-Public Use
  Company Number: GB-PFIZER INC-2007092936

PATIENT
  Sex: Female

DRUGS (4)
  1. LUSTRAL [Suspect]
     Indication: EPILEPSY
     Dosage: TEXT:50-75 MG
     Route: 048
  2. LUSTRAL [Suspect]
     Indication: DEPRESSION
  3. LUSTRAL [Suspect]
     Indication: ANXIETY
  4. LORAZEPAM [Concomitant]
     Indication: MUSCLE SPASMS
     Route: 048

REACTIONS (6)
  - DYSTONIA [None]
  - HYPERHIDROSIS [None]
  - MENSTRUAL DISORDER [None]
  - MUSCLE SPASMS [None]
  - PRURITUS [None]
  - RASH [None]
